FAERS Safety Report 19657893 (Version 2)
Quarter: 2021Q3

REPORT INFORMATION
  Report Type: Spontaneous
  Country: US (occurrence: US)
  Receive Date: 20210804
  Receipt Date: 20210820
  Transmission Date: 20211014
  Serious: No
  Sender: FDA-Public Use
  Company Number: US-009507513-2107USA004809

PATIENT
  Sex: Female

DRUGS (3)
  1. PROVENTIL [Suspect]
     Active Substance: ALBUTEROL
     Dosage: 1 DOSE AS NEEDED
     Dates: start: 202104, end: 2021
  2. PROVENTIL [Suspect]
     Active Substance: ALBUTEROL
     Dosage: 1 PUFF AS NEEDED
     Dates: start: 20210211, end: 20210218
  3. PROVENTIL [Suspect]
     Active Substance: ALBUTEROL
     Dosage: 1 PUFF AS NEEDED
     Dates: start: 20210711, end: 20210711

REACTIONS (8)
  - Poor quality device used [Unknown]
  - Product delivery mechanism issue [Unknown]
  - Product delivery mechanism issue [Unknown]
  - Product delivery mechanism issue [Unknown]
  - Product use issue [Unknown]
  - Poor quality device used [Unknown]
  - Poor quality device used [Unknown]
  - Device defective [Unknown]

NARRATIVE: CASE EVENT DATE: 2021
